FAERS Safety Report 5779830-X (Version None)
Quarter: 2008Q2

REPORT INFORMATION
  Report Type: 
  Country: None (occurrence: None)
  Receive Date: 20080620
  Receipt Date: 20080609
  Transmission Date: 20081010
  Serious: Yes (Death)
  Sender: FDA-Public Use
  Company Number: PHHY2008CA08300

PATIENT
  Sex: Male

DRUGS (1)
  1. CLOZARIL [Suspect]
     Indication: PARKINSON'S DISEASE
     Dosage: 62.5 MG
     Route: 048
     Dates: start: 20051213

REACTIONS (2)
  - LUNG DISORDER [None]
  - PNEUMONIA ASPIRATION [None]
